FAERS Safety Report 4971750-3 (Version None)
Quarter: 2006Q2

REPORT INFORMATION
  Report Type: 
  Country: None (occurrence: None)
  Receive Date: 20060413
  Receipt Date: 20060406
  Transmission Date: 20061013
  Serious: Yes (Other)
  Sender: FDA-Public Use
  Company Number: US-AVENTIS-200613269US

PATIENT
  Sex: Female

DRUGS (6)
  1. LOVENOX [Suspect]
     Indication: THROMBOSIS
     Dates: start: 20060101
  2. PROTONIX [Concomitant]
     Dosage: DOSE: UNK
  3. HYDROCHLOROTHIAZIDE [Concomitant]
     Dosage: DOSE: UNK
  4. ZOCOR [Concomitant]
     Dosage: DOSE: UNK
  5. ADALAT [Concomitant]
     Dosage: DOSE: UNK
  6. ZYRTEC [Concomitant]
     Dosage: DOSE: UNK

REACTIONS (6)
  - ANOREXIA [None]
  - ASTHENIA [None]
  - BLOOD CALCIUM INCREASED [None]
  - DYSGEUSIA [None]
  - VOMITING [None]
  - WEIGHT DECREASED [None]
